FAERS Safety Report 7938632-6 (Version None)
Quarter: 2011Q4

REPORT INFORMATION
  Report Type: 
  Country: None (occurrence: None)
  Receive Date: 20111123
  Receipt Date: 20111122
  Transmission Date: 20120403
  Serious: Yes (Hospitalization, Other)
  Sender: FDA-Public Use
  Company Number: US-MERCK-1107USA01805

PATIENT
  Age: 61 Year
  Sex: Female

DRUGS (5)
  1. ACTONEL [Suspect]
     Route: 065
     Dates: start: 20090801, end: 20100701
  2. FOSAMAX [Suspect]
     Indication: OSTEOPENIA
     Route: 048
     Dates: start: 20000101, end: 20080101
  3. ALENDRONATE SODIUM [Suspect]
     Indication: OSTEOPENIA
     Route: 048
     Dates: start: 20080101, end: 20090801
  4. ALENDRONATE SODIUM [Suspect]
     Indication: OSTEOPOROSIS
     Route: 048
     Dates: start: 20080101, end: 20090801
  5. FOSAMAX [Suspect]
     Indication: OSTEOPOROSIS
     Route: 048
     Dates: start: 20000101, end: 20080101

REACTIONS (7)
  - BREAST DISORDER [None]
  - FEMUR FRACTURE [None]
  - BREAST CANCER [None]
  - CONCUSSION [None]
  - ADVERSE EVENT [None]
  - LOW TURNOVER OSTEOPATHY [None]
  - ASTHENIA [None]
